FAERS Safety Report 19695045 (Version 3)
Quarter: 2021Q3

REPORT INFORMATION
  Report Type: Spontaneous
  Country: GB (occurrence: GB)
  Receive Date: 20210813
  Receipt Date: 20210826
  Transmission Date: 20211014
  Serious: Yes (Other)
  Sender: FDA-Public Use
  Company Number: GB-ADVANZ PHARMA-202108005625

PATIENT

DRUGS (4)
  1. PREDNISOLONE. [Suspect]
     Active Substance: PREDNISOLONE
     Dosage: 0.7 MG/KG, QD (DOSE REDUCED)
  2. PREDNISOLONE. [Suspect]
     Active Substance: PREDNISOLONE
     Indication: MENINGITIS EOSINOPHILIC
     Dosage: 1 MG/KG, QD
  3. PREDNISOLONE. [Suspect]
     Active Substance: PREDNISOLONE
     Dosage: 1 MG/KG, QD (DOSE WAS RESTORED)
  4. PREDNISOLONE. [Suspect]
     Active Substance: PREDNISOLONE
     Dosage: 0.7 MG/KG (RECOMMENCED)

REACTIONS (5)
  - Meningitis eosinophilic [Recovered/Resolved]
  - Disease recurrence [Recovered/Resolved]
  - Paraesthesia [Recovering/Resolving]
  - Radicular pain [Unknown]
  - Therapeutic response decreased [Unknown]
